FAERS Safety Report 22163352 (Version 2)
Quarter: 2023Q2

REPORT INFORMATION
  Report Type: Spontaneous
  Country: GB (occurrence: GB)
  Receive Date: 20230401
  Receipt Date: 20230408
  Transmission Date: 20230722
  Serious: Yes (Other)
  Sender: FDA-Public Use
  Company Number: GB-002147023-NVSC2023GB069771

PATIENT
  Sex: Female

DRUGS (2)
  1. LUTATHERA [Suspect]
     Active Substance: LUTETIUM OXODOTREOTIDE LU-177
     Indication: Glomus tumour
     Dosage: 25 ML
     Route: 065
     Dates: start: 20230322
  2. LUTATHERA [Suspect]
     Active Substance: LUTETIUM OXODOTREOTIDE LU-177
     Dosage: 25 ML
     Route: 065
     Dates: start: 20230322

REACTIONS (8)
  - Tumour flare [Unknown]
  - Hypertension [Unknown]
  - Nausea [Unknown]
  - Radicular pain [Unknown]
  - Tachycardia [Unknown]
  - Pain [Recovering/Resolving]
  - Injection site discolouration [Unknown]
  - Product use in unapproved indication [Unknown]
